FAERS Safety Report 16790327 (Version 1)
Quarter: 2019Q3

REPORT INFORMATION
  Report Type: Spontaneous
  Country: US (occurrence: US)
  Receive Date: 20190725
  Receipt Date: 20190725
  Transmission Date: 20191005
  Serious: Yes (Hospitalization)
  Sender: FDA-Public Use
  Company Number: None

PATIENT
  Age: 68 Year
  Sex: Male
  Weight: 81.65 kg

DRUGS (1)
  1. R.L.V. 500MG HEMP EXTRACT ISOLATE [Suspect]
     Active Substance: DIETARY SUPPLEMENT\HEMP
     Indication: SLEEP DISORDER THERAPY
     Route: 048
     Dates: start: 20190619

REACTIONS (1)
  - Haemorrhage [None]

NARRATIVE: CASE EVENT DATE: 20190620
